FAERS Safety Report 6242396-4 (Version None)
Quarter: 2009Q2

REPORT INFORMATION
  Report Type: 
  Country: None (occurrence: None)
  Receive Date: 20090624
  Receipt Date: 20090616
  Transmission Date: 20091009
  Serious: No
  Sender: FDA-Public Use
  Company Number: US-JNJFOC-20090606190

PATIENT
  Sex: Female
  Weight: 90.72 kg

DRUGS (6)
  1. FENTANYL TRANSDERMAL SYSTEM [Suspect]
     Indication: BACK PAIN
     Route: 062
  2. ASPIRIN [Concomitant]
     Indication: THROMBOSIS
     Route: 048
  3. REGLAN [Concomitant]
     Indication: GASTROOESOPHAGEAL REFLUX DISEASE
     Route: 048
  4. MORPHINE [Concomitant]
     Indication: BREAKTHROUGH PAIN
     Route: 048
  5. SOMA [Concomitant]
     Indication: MUSCLE SPASMS
     Dosage: 350 MG 2 TABLETS DAILY
     Route: 048
  6. KLONOPIN [Concomitant]
     Indication: ANXIETY
     Route: 048

REACTIONS (4)
  - FATIGUE [None]
  - PAIN [None]
  - RESTLESSNESS [None]
  - WRONG TECHNIQUE IN DRUG USAGE PROCESS [None]
